FAERS Safety Report 9416999 (Version 2)
Quarter: 2013Q4

REPORT INFORMATION
  Report Type: Report from Study
  Country: JP (occurrence: JP)
  Receive Date: 20130724
  Receipt Date: 20131009
  Transmission Date: 20140711
  Serious: Yes (Hospitalization)
  Sender: FDA-Public Use
  Company Number: JP-AMGEN-JPNCT2013051386

PATIENT
  Age: 66 Year
  Sex: Female
  Weight: 67.8 kg

DRUGS (4)
  1. ETANERCEPT [Suspect]
     Indication: RHEUMATOID ARTHRITIS
     Dosage: 25 MG, QWK
     Route: 058
     Dates: start: 20120702, end: 20130106
  2. METHOTREXATE SODIUM [Concomitant]
     Indication: RHEUMATOID ARTHRITIS
     Dosage: 12 MG, WEEKLY
     Route: 048
     Dates: start: 20120326, end: 20120506
  3. METHOTREXATE SODIUM [Concomitant]
     Dosage: 14 MG, WEEKLY
     Route: 048
     Dates: start: 20120507, end: 20120603
  4. METHOTREXATE SODIUM [Concomitant]
     Dosage: 16 MG, WEEKLY
     Route: 048
     Dates: start: 20120604, end: 20130106

REACTIONS (1)
  - Organising pneumonia [Recovering/Resolving]
